FAERS Safety Report 9305750 (Version 1)
Quarter: 2013Q2

REPORT INFORMATION
  Report Type: Spontaneous
  Country: GB (occurrence: GB)
  Receive Date: 20130514
  Receipt Date: 20130514
  Transmission Date: 20140414
  Serious: Yes (Hospitalization)
  Sender: FDA-Public Use
  Company Number: 2013035856

PATIENT
  Age: 39 Year
  Sex: Female

DRUGS (2)
  1. HUMAN ALBUMIN [Suspect]
     Indication: BLOOD ALBUMIN DECREASED
     Dosage: (NOT OTHERWISE SPECIFIED)?2 ADDITIONAL UNITS ADMINISTERED
     Route: 042
  2. HUMAN ALBUMIN [Suspect]
     Indication: BLOOD ALBUMIN DECREASED
     Dosage: (NOT OTHERWISE SPECIFIED)?2 ADDITIONAL UNITS ADMINISTERED
     Route: 042

REACTIONS (6)
  - Ovarian hyperstimulation syndrome [None]
  - Adnexal torsion [None]
  - Abdominal distension [None]
  - Small intestinal obstruction [None]
  - Maternal exposure during pregnancy [None]
  - Condition aggravated [None]
